FAERS Safety Report 11526809 (Version 1)
Quarter: 2015Q3

REPORT INFORMATION
  Report Type: Spontaneous
  Country: US (occurrence: US)
  Receive Date: 20150903
  Receipt Date: 20150903
  Transmission Date: 20151125
  Serious: No
  Sender: FDA-Public Use
  Company Number: US-ELI_LILLY_AND_COMPANY-US201312009273

PATIENT
  Sex: Female

DRUGS (20)
  1. NEURONTIN [Concomitant]
     Active Substance: GABAPENTIN
     Dosage: 600 MG, TID
  2. CARVEDILOL. [Concomitant]
     Active Substance: CARVEDILOL
     Indication: BLOOD PRESSURE MEASUREMENT
     Dosage: 1 UNK, UNK
  3. TRICOR [Concomitant]
     Active Substance: FENOFIBRATE
     Dosage: 145 MG, EACH EVENING
  4. GLIPIZDE [Concomitant]
     Indication: BLOOD GLUCOSE ABNORMAL
     Dosage: 5 MG, UNK
  5. STOOL SOFTENER [Concomitant]
     Active Substance: DOCUSATE CALCIUM
     Dosage: 1 UNK, UNK
  6. TRAZODONE [Suspect]
     Active Substance: TRAZODONE HYDROCHLORIDE
     Indication: NIGHTMARE
     Dosage: 50 MG, EACH EVENING
  7. ALPRAZOLAM. [Suspect]
     Active Substance: ALPRAZOLAM
     Indication: NIGHTMARE
     Dosage: 1 MG, EACH EVENING
  8. LEVOTHYROXIN [Concomitant]
     Active Substance: LEVOTHYROXINE
     Dosage: 50 UG, EACH MORNING
  9. MICARDIS [Concomitant]
     Active Substance: TELMISARTAN
     Dosage: 40 MG, EACH EVENING
  10. IRON COMPOUND [Concomitant]
     Dosage: 65 MG, BID
  11. CYMBALTA [Suspect]
     Active Substance: DULOXETINE HYDROCHLORIDE
     Indication: MAJOR DEPRESSION
     Dosage: 120 MG, EACH EVENING
     Route: 065
     Dates: start: 2012
  12. CYMBALTA [Suspect]
     Active Substance: DULOXETINE HYDROCHLORIDE
     Indication: POST-TRAUMATIC STRESS DISORDER
  13. AMLODIPINE [Concomitant]
     Active Substance: AMLODIPINE BESYLATE
     Indication: BLOOD PRESSURE MEASUREMENT
     Dosage: 1 UNK, UNK
  14. NEXIUM [Concomitant]
     Active Substance: ESOMEPRAZOLE MAGNESIUM
     Dosage: 40 MG, EACH EVENING
  15. TOPAMAX [Concomitant]
     Active Substance: TOPIRAMATE
     Indication: PROPHYLAXIS
     Dosage: 50 MG, BID
  16. ASPIRIN. [Concomitant]
     Active Substance: ASPIRIN
     Dosage: 81 MG, UNK
  17. MULTIVITAMIN [Concomitant]
     Active Substance: VITAMINS
     Dosage: UNK UNK, QD
  18. CALCIUM [Concomitant]
     Active Substance: CALCIUM
     Dosage: UNK UNK, QD
  19. POTASSIUM [Concomitant]
     Active Substance: POTASSIUM
     Dosage: UNK UNK, QD
  20. TRAZODONE [Concomitant]
     Active Substance: TRAZODONE HYDROCHLORIDE
     Indication: PAIN
     Dosage: 50 MG, UNK

REACTIONS (7)
  - Nightmare [Unknown]
  - Headache [Unknown]
  - Depressed mood [Unknown]
  - Memory impairment [Unknown]
  - Nausea [Unknown]
  - Diarrhoea [Unknown]
  - Fibromyalgia [Unknown]
